FAERS Safety Report 9253682 (Version 4)
Quarter: 2014Q3

REPORT INFORMATION
  Report Type: Spontaneous
  Country: US (occurrence: US)
  Receive Date: 20130425
  Receipt Date: 20140903
  Transmission Date: 20150326
  Serious: Yes (Hospitalization, Other)
  Sender: FDA-Public Use
  Company Number: US-ASTRAZENECA-2013SE27461

PATIENT
  Age: 931 Month
  Sex: Female

DRUGS (17)
  1. NEXIUM [Suspect]
     Active Substance: ESOMEPRAZOLE MAGNESIUM
     Indication: GASTROOESOPHAGEAL REFLUX DISEASE
     Dosage: 1 TABLET A DAY IN THE MORNING AS PRESCRIBED BY DOCTOR THEN 2 TIMES DAILY IN 2007 THEN BACK TO 1 DAIL
     Route: 048
     Dates: start: 2005, end: 2010
  2. NEXIUM [Suspect]
     Active Substance: ESOMEPRAZOLE MAGNESIUM
     Indication: GASTROOESOPHAGEAL REFLUX DISEASE
     Route: 048
     Dates: start: 2005, end: 2010
  3. NEXIUM [Suspect]
     Active Substance: ESOMEPRAZOLE MAGNESIUM
     Indication: GASTROOESOPHAGEAL REFLUX DISEASE
     Route: 048
     Dates: start: 2007
  4. PHENAZOPYRID [Concomitant]
     Dates: start: 20050913
  5. NEXIUM [Suspect]
     Active Substance: ESOMEPRAZOLE MAGNESIUM
     Indication: GASTROOESOPHAGEAL REFLUX DISEASE
     Dosage: TAKE ONE CAPSULE BY MOUTH IN THE MORNING
     Route: 048
     Dates: start: 20050328
  6. VISVEX [Concomitant]
     Dates: start: 20061230
  7. NEXIUM [Suspect]
     Active Substance: ESOMEPRAZOLE MAGNESIUM
     Indication: GASTROOESOPHAGEAL REFLUX DISEASE
     Route: 048
     Dates: start: 20050506
  8. NEXIUM [Suspect]
     Active Substance: ESOMEPRAZOLE MAGNESIUM
     Indication: GASTROOESOPHAGEAL REFLUX DISEASE
     Route: 048
     Dates: start: 2008, end: 2010
  9. LESCOL [Concomitant]
     Active Substance: FLUVASTATIN SODIUM
     Dates: start: 20051008
  10. PROMETHAZINE [Concomitant]
     Active Substance: PROMETHAZINE\PROMETHAZINE HYDROCHLORIDE
     Dosage: 25 MG EVERY FOUR HOURS AS NEEDED
     Route: 048
     Dates: start: 20060809
  11. PREDNISOLON [Concomitant]
     Active Substance: PREDNISOLONE
     Dates: start: 2012
  12. ALPRAZOLAM. [Concomitant]
     Active Substance: ALPRAZOLAM
     Route: 048
     Dates: start: 20050105
  13. BONIVA [Concomitant]
     Active Substance: IBANDRONATE SODIUM
     Route: 048
     Dates: start: 20051008
  14. VITAMIN B12 [Concomitant]
     Active Substance: CYANOCOBALAMIN
  15. RANITIDINE [Concomitant]
     Active Substance: RANITIDINE\RANITIDINE HYDROCHLORIDE
     Dates: start: 20061228
  16. CRESTOR [Concomitant]
     Active Substance: ROSUVASTATIN CALCIUM
     Dates: start: 20050707
  17. ACTONEL [Concomitant]
     Active Substance: RISEDRONATE SODIUM
     Route: 048
     Dates: start: 20040524

REACTIONS (12)
  - Vitamin D deficiency [Unknown]
  - Bone disorder [Unknown]
  - Swelling [Unknown]
  - Osteopenia [Unknown]
  - Osteoporosis [Unknown]
  - Poor peripheral circulation [Unknown]
  - Bone density decreased [Unknown]
  - Fibula fracture [Recovered/Resolved]
  - Fall [Unknown]
  - Ankle fracture [Unknown]
  - Cataract [Unknown]
  - Calcium deficiency [Unknown]

NARRATIVE: CASE EVENT DATE: 200806
